FAERS Safety Report 4357617-2 (Version None)
Quarter: 2004Q2

REPORT INFORMATION
  Report Type: 
  Country: None (occurrence: None)
  Receive Date: 20040510
  Receipt Date: 20040119
  Transmission Date: 20050107
  Serious: Yes (Other)
  Sender: FDA-Public Use
  Company Number: 2004-04-2092

PATIENT
  Sex: Female

DRUGS (2)
  1. RIBAVIRIN [Suspect]
     Indication: HEPATITIS
     Dates: start: 20031001, end: 20031001
  2. INTERFERON [Suspect]
     Indication: HEPATITIS
     Dates: start: 20031001, end: 20031001

REACTIONS (4)
  - DRUG ABUSER [None]
  - TREATMENT NONCOMPLIANCE [None]
  - VOMITING [None]
  - WEIGHT DECREASED [None]
